FAERS Safety Report 7901178-5 (Version None)
Quarter: 2011Q4

REPORT INFORMATION
  Report Type: 
  Country: None (occurrence: None)
  Receive Date: 20111108
  Receipt Date: 20111026
  Transmission Date: 20120403
  Serious: Yes (Other)
  Sender: FDA-Public Use
  Company Number: JP-SANOFI-AVENTIS-2011SA071139

PATIENT
  Age: 76 Year
  Sex: Female

DRUGS (1)
  1. LASIX [Suspect]
     Route: 042
     Dates: start: 20101101

REACTIONS (2)
  - DYSKINESIA [None]
  - METABOLIC ALKALOSIS [None]
